FAERS Safety Report 19439524 (Version 1)
Quarter: 2021Q2

REPORT INFORMATION
  Report Type: Report from Study
  Country: None (occurrence: DE)
  Receive Date: 20210618
  Receipt Date: 20210618
  Transmission Date: 20210717
  Serious: Yes (Hospitalization)
  Sender: FDA-Public Use
  Company Number: DE-ABBVIE-21K-062-3951503-00

PATIENT
  Age: 67 Year
  Sex: Male

DRUGS (2)
  1. RINVOQ [Suspect]
     Active Substance: UPADACITINIB
     Indication: RHEUMATOID ARTHRITIS
     Route: 048
     Dates: end: 20201028
  2. JYSELECA [Concomitant]
     Active Substance: FILGOTINIB
     Indication: PRODUCT USED FOR UNKNOWN INDICATION
     Dates: start: 20210223

REACTIONS (9)
  - COVID-19 pneumonia [Recovered/Resolved]
  - Chlamydia test positive [Recovered/Resolved]
  - Klebsiella infection [Recovered/Resolved]
  - Respiratory failure [Recovered/Resolved]
  - Acute respiratory distress syndrome [Recovered/Resolved]
  - Serratia infection [Recovered/Resolved]
  - Staphylococcal sepsis [Recovered/Resolved]
  - Cytomegalovirus infection [Recovered/Resolved]
  - Superinfection bacterial [Recovered/Resolved]

NARRATIVE: CASE EVENT DATE: 20201026
